FAERS Safety Report 24995431 (Version 1)
Quarter: 2025Q1

REPORT INFORMATION
  Report Type: Spontaneous
  Country: GB (occurrence: GB)
  Receive Date: 20250221
  Receipt Date: 20250221
  Transmission Date: 20250408
  Serious: Yes (Hospitalization)
  Sender: RANBAXY
  Company Number: GB-SUN PHARMACEUTICAL INDUSTRIES LTD-2025R1-494989

PATIENT
  Age: 19 Year
  Sex: Female

DRUGS (4)
  1. NIFEDIPINE [Suspect]
     Active Substance: NIFEDIPINE
     Indication: Fibromuscular dysplasia
     Dosage: 60 MILLIGRAM, OD
     Route: 048
  2. NIFEDIPINE [Suspect]
     Active Substance: NIFEDIPINE
     Dosage: 30 MILLIGRAM, BID
     Route: 048
  3. BISOPROLOL [Suspect]
     Active Substance: BISOPROLOL
     Indication: Fibromuscular dysplasia
     Dosage: 7.5 MILLIGRAM, OD
     Route: 065
  4. BISOPROLOL [Suspect]
     Active Substance: BISOPROLOL
     Dosage: 1.25 MILLIGRAM, OD
     Route: 048

REACTIONS (1)
  - Hypertension [Recovered/Resolved]
